FAERS Safety Report 7889734-4 (Version None)
Quarter: 2011Q4

REPORT INFORMATION
  Report Type: 
  Country: None (occurrence: None)
  Receive Date: 20111103
  Receipt Date: 20111028
  Transmission Date: 20120403
  Serious: Yes (Hospitalization)
  Sender: FDA-Public Use
  Company Number: US-ABBOTT-11P-163-0868226-00

PATIENT
  Sex: Female
  Weight: 123.94 kg

DRUGS (8)
  1. HUMIRA [Suspect]
     Indication: PSORIATIC ARTHROPATHY
     Dates: start: 20110501
  2. LISINOPRIL [Concomitant]
     Indication: BLOOD PRESSURE
     Route: 048
  3. PROZAC [Concomitant]
     Indication: PRODUCT USED FOR UNKNOWN INDICATION
     Route: 048
  4. METHOTREXATE [Concomitant]
     Indication: PRODUCT USED FOR UNKNOWN INDICATION
     Route: 048
  5. CLOBETASOL [Concomitant]
     Indication: PSORIASIS
  6. TRIAMCINOLONE [Concomitant]
     Indication: PSORIASIS
  7. INSULIN [Concomitant]
     Indication: PRODUCT USED FOR UNKNOWN INDICATION
     Dosage: REG: SLIDING SCALE AS DIRECTED
  8. LANTUS [Concomitant]
     Indication: DIABETES MELLITUS
     Dosage: 10 UNITS AM AND PM

REACTIONS (13)
  - FEELING ABNORMAL [None]
  - EAR INFECTION [None]
  - NAUSEA [None]
  - COUGH [None]
  - URTICARIA [None]
  - NASAL CONGESTION [None]
  - DYSPNOEA [None]
  - ARTHRALGIA [None]
  - PHARYNGEAL OEDEMA [None]
  - HEADACHE [None]
  - RESPIRATORY TRACT CONGESTION [None]
  - SINUS CONGESTION [None]
  - DRUG HYPERSENSITIVITY [None]
